FAERS Safety Report 4906506-0 (Version None)
Quarter: 2006Q1

REPORT INFORMATION
  Report Type: 
  Country: None (occurrence: None)
  Receive Date: 20060209
  Receipt Date: 20060202
  Transmission Date: 20060701
  Serious: Yes (Congenital Anomaly, Other)
  Sender: FDA-Public Use
  Company Number: US-MERCK-0602USA01309B2

PATIENT
  Sex: Male
  Weight: 1 kg

DRUGS (2)
  1. INVANZ [Suspect]
     Indication: SERRATIA INFECTION
  2. CEFTRIAXONE SODIUM [Concomitant]
     Indication: SERRATIA INFECTION

REACTIONS (7)
  - CHRONIC RESPIRATORY DISEASE [None]
  - JAUNDICE [None]
  - PATENT DUCTUS ARTERIOSUS [None]
  - PLACENTAL DISORDER [None]
  - PREMATURE BABY [None]
  - RETINOPATHY OF PREMATURITY [None]
  - SMALL FOR DATES BABY [None]
